FAERS Safety Report 7298894-8 (Version None)
Quarter: 2011Q1

REPORT INFORMATION
  Report Type: 
  Country: None (occurrence: None)
  Receive Date: 20110217
  Receipt Date: 20110207
  Transmission Date: 20110831
  Serious: Yes (Other)
  Sender: FDA-Public Use
  Company Number: PHHY2011US09791

PATIENT
  Sex: Male

DRUGS (8)
  1. POTASSIUM [Concomitant]
     Dosage: 10 MEQ, UNK
  2. ASCORBIC ACID [Concomitant]
  3. SANDOSTATIN LAR [Suspect]
     Dates: start: 20100901
  4. CREON [Concomitant]
     Dosage: QD
  5. LABETALOL [Concomitant]
     Dosage: 200 MG, UNK
  6. VITAMIN D [Concomitant]
     Dosage: 1000 IU, UNK
  7. OMEPRAZOLE [Concomitant]
  8. MULTI-VITAMINS [Concomitant]

REACTIONS (12)
  - CHOLELITHIASIS [None]
  - FATIGUE [None]
  - HAEMATOCRIT DECREASED [None]
  - DIARRHOEA [None]
  - DIZZINESS [None]
  - ANAEMIA [None]
  - HEADACHE [None]
  - WEIGHT DECREASED [None]
  - NAUSEA [None]
  - DYSPEPSIA [None]
  - DRUG INEFFECTIVE [None]
  - FLATULENCE [None]
